FAERS Safety Report 14207028 (Version 1)
Quarter: 2017Q4

REPORT INFORMATION
  Report Type: Report from Study
  Country: None (occurrence: US)
  Receive Date: 20171121
  Receipt Date: 20171121
  Transmission Date: 20180321
  Serious: Yes (Other)
  Sender: FDA-Public Use
  Company Number: US-ABBVIE-17K-163-2164508-00

PATIENT
  Age: 43 Year
  Sex: Female

DRUGS (1)
  1. HUMIRA [Suspect]
     Active Substance: ADALIMUMAB
     Indication: CROHN^S DISEASE
     Route: 058

REACTIONS (5)
  - Increased tendency to bruise [Unknown]
  - Haemorrhagic diathesis [Unknown]
  - Small intestinal resection [Unknown]
  - Rash [Recovered/Resolved]
  - Folliculitis [Unknown]

NARRATIVE: CASE EVENT DATE: 2012
